FAERS Safety Report 23960864 (Version 1)
Quarter: 2024Q2

REPORT INFORMATION
  Report Type: Spontaneous
  Country: US (occurrence: None)
  Receive Date: 20240609
  Receipt Date: 20240609
  Transmission Date: 20240715
  Serious: Yes (Other)
  Sender: FDA-Public Use
  Company Number: None

PATIENT
  Age: 57 Year
  Weight: 71.55 kg

DRUGS (1)
  1. CHLORHEXIDINE GLUCONATE [Suspect]
     Active Substance: CHLORHEXIDINE GLUCONATE
     Indication: Preoperative care
     Dosage: OTHER QUANTITY : 6 6 CLOTHS?OTHER FREQUENCY : PRIOR TO SURGERY?
     Route: 061
     Dates: start: 20240605, end: 20240605

REACTIONS (4)
  - Pruritus [None]
  - Urticaria [None]
  - Rash [None]
  - Similar reaction on previous exposure to drug [None]

NARRATIVE: CASE EVENT DATE: 20240605
